FAERS Safety Report 5293733-9 (Version None)
Quarter: 2007Q2

REPORT INFORMATION
  Report Type: 
  Country: None (occurrence: None)
  Receive Date: 20070405
  Receipt Date: 20070326
  Transmission Date: 20071010
  Serious: Yes (Other)
  Sender: FDA-Public Use
  Company Number: 2007RR-06602

PATIENT
  Age: 67 Year
  Sex: Female

DRUGS (4)
  1. ATENOLOL [Suspect]
     Dosage: 50 MG, QD
  2. AMLODIPINE MALEATE [Suspect]
     Dosage: 10 MG, QD
  3. DOXAZOSINE (DOXAZOSINE) [Suspect]
     Dosage: 4 MG, BID
  4. FUROSEMIDE [Suspect]
     Dosage: 50 MG, QD

REACTIONS (8)
  - BLOOD CREATININE INCREASED [None]
  - HEADACHE [None]
  - HYPERTENSION [None]
  - NAUSEA [None]
  - PROTEINURIA [None]
  - RENAL ARTERY STENOSIS [None]
  - RENAL ARTERY THROMBOSIS [None]
  - VOMITING [None]
